FAERS Safety Report 12243824 (Version 1)
Quarter: 2016Q2

REPORT INFORMATION
  Report Type: Spontaneous
  Country: US (occurrence: US)
  Receive Date: 20160406
  Receipt Date: 20160406
  Transmission Date: 20160815
  Serious: No
  Sender: FDA-Public Use
  Company Number: US-PARAPRO-2015PP000001

PATIENT
  Age: 4 Year
  Sex: Female
  Weight: 20.77 kg

DRUGS (1)
  1. NATROBA [Suspect]
     Active Substance: SPINOSAD
     Indication: LICE INFESTATION
     Dosage: UNK
     Route: 061
     Dates: start: 20141215, end: 20141215

REACTIONS (1)
  - Alopecia [Not Recovered/Not Resolved]

NARRATIVE: CASE EVENT DATE: 201501
